FAERS Safety Report 18548971 (Version 1)
Quarter: 2020Q4

REPORT INFORMATION
  Report Type: Spontaneous
  Country: ES (occurrence: ES)
  Receive Date: 20201125
  Receipt Date: 20201125
  Transmission Date: 20210114
  Serious: Yes (Other)
  Sender: FDA-Public Use
  Company Number: ES-UCBSA-2020048616

PATIENT

DRUGS (1)
  1. LEVETIRACETAM. [Suspect]
     Active Substance: LEVETIRACETAM
     Indication: EPILEPSY
     Dosage: 10-20 MG/KG/DAY OR 250 MG/DAY LEV FOR THREE DAYS, INCREASING THE DOSE TO 40-50 MG/KG/DAY

REACTIONS (20)
  - Seizure [Unknown]
  - Fatigue [Unknown]
  - Bradyphrenia [Unknown]
  - Dry mouth [Unknown]
  - Salivary hypersecretion [Unknown]
  - Somnolence [Unknown]
  - Irritability [Unknown]
  - Increased appetite [Unknown]
  - Depressed mood [Unknown]
  - Aggression [Unknown]
  - Weight increased [Unknown]
  - Drug ineffective [Unknown]
  - Psychotic disorder [Unknown]
  - Headache [Unknown]
  - Behaviour disorder [Unknown]
  - Alopecia [Unknown]
  - Decreased appetite [Unknown]
  - Dizziness [Unknown]
  - Learning disorder [Unknown]
  - Constipation [Unknown]
